FAERS Safety Report 10558465 (Version 1)
Quarter: 2014Q4

REPORT INFORMATION
  Report Type: Spontaneous
  Country: US (occurrence: None)
  Receive Date: 20141029
  Receipt Date: 20141029
  Transmission Date: 20150529
  Serious: Yes (Hospitalization, Other)
  Sender: FDA-Public Use
  Company Number: ADR-2014-01981

PATIENT
  Sex: Female

DRUGS (4)
  1. FENTANYL INTRATHECAL [Suspect]
     Active Substance: FENTANYL
  2. DILAUDID [Suspect]
     Active Substance: HYDROMORPHONE HYDROCHLORIDE
     Indication: PAIN
  3. BACLOFEN INTRATHECAL [Suspect]
     Active Substance: BACLOFEN
     Indication: PAIN
  4. CLONIDINE. [Suspect]
     Active Substance: CLONIDINE

REACTIONS (8)
  - Stress [None]
  - Anger [None]
  - Drug effect decreased [None]
  - Memory impairment [None]
  - Insomnia [None]
  - Drug withdrawal syndrome [None]
  - Pancreatitis chronic [None]
  - Pain [None]
